FAERS Safety Report 5627625-X (Version None)
Quarter: 2008Q1

REPORT INFORMATION
  Report Type: 
  Country: None (occurrence: None)
  Receive Date: 20080214
  Receipt Date: 20080214
  Transmission Date: 20080703
  Serious: Yes (Death)
  Sender: FDA-Public Use
  Company Number: None

PATIENT
  Age: 54 Year
  Sex: Male
  Weight: 76.2043 kg

DRUGS (1)
  1. DILANTIN [Suspect]
     Indication: EPILEPSY
     Dosage: 500MG DAILY PO
     Route: 048
     Dates: start: 19850101, end: 20070311

REACTIONS (7)
  - COMPLETED SUICIDE [None]
  - DEPRESSION [None]
  - GINGIVAL DISORDER [None]
  - GUN SHOT WOUND [None]
  - HOSTILITY [None]
  - SUICIDE ATTEMPT [None]
  - TOOTH DISORDER [None]
